FAERS Safety Report 12743950 (Version 1)
Quarter: 2016Q3

REPORT INFORMATION
  Report Type: Spontaneous
  Country: GB (occurrence: GB)
  Receive Date: 20160914
  Receipt Date: 20160914
  Transmission Date: 20161109
  Serious: Yes (Other)
  Sender: FDA-Public Use
  Company Number: GB-MYLANLABS-2016M1037902

PATIENT

DRUGS (4)
  1. ADCAL D3 [Suspect]
     Active Substance: CALCIUM CARBONATE\CHOLECALCIFEROL
     Dosage: UNK
     Route: 048
     Dates: start: 20160603
  2. ALENDRONATE [Suspect]
     Active Substance: ALENDRONATE SODIUM
     Dosage: 70 MG, QW
     Route: 048
     Dates: start: 20160627
  3. PREDNISOLONE. [Suspect]
     Active Substance: PREDNISOLONE
     Dosage: 40 MG, UNK (40 MG REDUCING CURRENTLY TO 17.5 MG)
     Route: 048
     Dates: start: 20160602
  4. ASPIRIN                            /00002701/ [Suspect]
     Active Substance: ASPIRIN
     Dosage: 75 MG, QD
     Dates: start: 20160603

REACTIONS (2)
  - Hypoaesthesia [Not Recovered/Not Resolved]
  - Paraesthesia [Not Recovered/Not Resolved]

NARRATIVE: CASE EVENT DATE: 20160715
